FAERS Safety Report 11374788 (Version 1)
Quarter: 2015Q3

REPORT INFORMATION
  Report Type: Report from Study
  Country: FR (occurrence: FR)
  Receive Date: 20150813
  Receipt Date: 20150813
  Transmission Date: 20151125
  Serious: Yes (Hospitalization, Other)
  Sender: FDA-Public Use
  Company Number: FR-BRISTOL-MYERS SQUIBB COMPANY-18753350

PATIENT
  Age: 70 Year
  Sex: Female
  Weight: 65 kg

DRUGS (2)
  1. LEVOTHYROX [Concomitant]
     Active Substance: LEVOTHYROXINE
     Indication: HYPOTHYROIDISM
     Dosage: UNK
     Route: 048
  2. DASATINIB [Suspect]
     Active Substance: DASATINIB
     Indication: CHRONIC MYELOID LEUKAEMIA
     Dosage: 25MAR10-2APR10  RESTARTD 2APR10 DISCONTIN 20APR10  DOSE WAS REDUCED 80 MG DAILY FROM 29APR10
     Route: 048
     Dates: start: 20100302

REACTIONS (5)
  - Open reduction of fracture [Unknown]
  - Hepatocellular injury [Unknown]
  - Cholestasis [Unknown]
  - Ankle fracture [Recovered/Resolved]
  - Fall [Unknown]

NARRATIVE: CASE EVENT DATE: 201303
